FAERS Safety Report 4910318-1 (Version None)
Quarter: 2006Q1

REPORT INFORMATION
  Report Type: 
  Country: None (occurrence: None)
  Receive Date: 20060213
  Receipt Date: 20050207
  Transmission Date: 20060701
  Serious: Yes (Hospitalization, Disabling)
  Sender: FDA-Public Use
  Company Number: US-MERCK-0502USA00915

PATIENT
  Age: 49 Year
  Sex: Male
  Weight: 110 kg

DRUGS (3)
  1. VIOXX [Suspect]
     Indication: BACK PAIN
     Route: 048
     Dates: start: 20000111, end: 20030801
  2. METOPROLOL [Concomitant]
     Route: 065
  3. IPRATROPIUM BROMIDE [Concomitant]
     Route: 065

REACTIONS (25)
  - ANAEMIA MACROCYTIC [None]
  - AORTIC ANEURYSM [None]
  - AORTIC DISSECTION [None]
  - BACK PAIN [None]
  - CARDIAC FAILURE CONGESTIVE [None]
  - CARDIOMEGALY [None]
  - CHRONIC OBSTRUCTIVE PULMONARY DISEASE [None]
  - DYSPHAGIA [None]
  - DYSPNOEA [None]
  - FALL [None]
  - HYPERTENSION [None]
  - MUSCULOSKELETAL PAIN [None]
  - MYOCARDIAL INFARCTION [None]
  - NECK PAIN [None]
  - PLEURAL EFFUSION [None]
  - RECTAL HAEMORRHAGE [None]
  - SEXUAL DYSFUNCTION [None]
  - SHOULDER PAIN [None]
  - SKIN ULCER [None]
  - SLEEP APNOEA SYNDROME [None]
  - SNORING [None]
  - VOCAL CORD DISORDER [None]
  - VOCAL CORD PARESIS [None]
  - WHEEZING [None]
  - WOUND [None]
